FAERS Safety Report 14409531 (Version 2)
Quarter: 2018Q2

REPORT INFORMATION
  Report Type: Spontaneous
  Country: US (occurrence: US)
  Receive Date: 20180119
  Receipt Date: 20180416
  Transmission Date: 20180711
  Serious: No
  Sender: FDA-Public Use
  Company Number: US-LEO PHARMA-306985

PATIENT
  Age: 57 Year
  Sex: Female

DRUGS (1)
  1. PICATO [Suspect]
     Active Substance: INGENOL MEBUTATE
     Indication: ACTINIC KERATOSIS
     Route: 061
     Dates: start: 20180114, end: 20180114

REACTIONS (8)
  - Nausea [Recovered/Resolved]
  - Application site exfoliation [Recovered/Resolved]
  - Muscle tightness [Recovered/Resolved]
  - Application site erythema [Recovered/Resolved]
  - Application site warmth [Recovered/Resolved]
  - Application site swelling [Recovered/Resolved]
  - Incorrect drug administration duration [Unknown]
  - Drug administration error [Unknown]
